FAERS Safety Report 24263540 (Version 1)
Quarter: 2024Q3

REPORT INFORMATION
  Report Type: Spontaneous
  Country: US (occurrence: US)
  Receive Date: 20240829
  Receipt Date: 20240829
  Transmission Date: 20241017
  Serious: No
  Sender: GLAND PHARMA
  Company Number: US-GLANDPHARMA-US-2024GLNSPO00701

PATIENT

DRUGS (2)
  1. PROCHLORPERAZINE EDISYLATE [Suspect]
     Active Substance: PROCHLORPERAZINE EDISYLATE
     Indication: Meniere^s disease
     Route: 065
  2. PROPRANOLOL [Concomitant]
     Active Substance: PROPRANOLOL HYDROCHLORIDE
     Indication: Anxiety
     Route: 065

REACTIONS (1)
  - Drug ineffective for unapproved indication [Unknown]
